FAERS Safety Report 9743205 (Version 1)
Quarter: 2013Q4

REPORT INFORMATION
  Report Type: Spontaneous
  Country: US (occurrence: US)
  Receive Date: 20131210
  Receipt Date: 20131210
  Transmission Date: 20140711
  Serious: No
  Sender: FDA-Public Use
  Company Number: US-GILEAD-2009-0025015

PATIENT
  Sex: Female
  Weight: 55.34 kg

DRUGS (4)
  1. LETAIRIS [Suspect]
     Indication: PULMONARY ARTERIAL HYPERTENSION
     Route: 048
     Dates: start: 20091003
  2. PREDNISONE [Concomitant]
  3. VIAGRA [Concomitant]
  4. NEXIUM [Concomitant]

REACTIONS (2)
  - Constipation [Unknown]
  - Abdominal pain upper [Unknown]
